APPROVED DRUG PRODUCT: HYDROCODONE BITARTRATE AND ACETAMINOPHEN
Active Ingredient: ACETAMINOPHEN; HYDROCODONE BITARTRATE
Strength: 750MG;10MG
Dosage Form/Route: TABLET;ORAL
Application: A040094 | Product #004
Applicant: WATSON LABORATORIES INC
Approved: Mar 22, 1999 | RLD: No | RS: No | Type: DISCN